FAERS Safety Report 9646081 (Version 2)
Quarter: 2013Q4

REPORT INFORMATION
  Report Type: Report from Study
  Country: FR (occurrence: FR)
  Receive Date: 20131025
  Receipt Date: 20131028
  Transmission Date: 20140711
  Serious: Yes (Hospitalization)
  Sender: FDA-Public Use
  Company Number: FR-ROCHE-1293251

PATIENT
  Sex: Female

DRUGS (4)
  1. BEVACIZUMAB [Suspect]
     Indication: COLON CANCER
     Route: 042
  2. IRINOTECAN [Suspect]
     Indication: COLON CANCER
     Dosage: LAST DOSE OF IRINOTECAN HYDROCHLORIDE ADMINISTERED WAS OF 310 MG.
     Route: 065
  3. FOLINIC ACID [Suspect]
     Indication: COLON CANCER
     Dosage: LAST DOSE OF FOLINIC ACID ADMINISTERED WAS OF 684 MG.
     Route: 065
  4. 5-FU [Suspect]
     Indication: COLON CANCER
     Dosage: LAST DOSE OF FLUOROURACIL WAS OF 675 MG IN BOLUS AND 4100 MG AS CONTINUOUS DOSING.
     Route: 065

REACTIONS (1)
  - General physical health deterioration [Recovered/Resolved]
